FAERS Safety Report 8096348-2 (Version None)
Quarter: 2012Q1

REPORT INFORMATION
  Report Type: 
  Country: None (occurrence: None)
  Receive Date: 20120131
  Receipt Date: 20120124
  Transmission Date: 20120608
  Serious: Yes (Hospitalization, Other)
  Sender: FDA-Public Use
  Company Number: PHHY2012US006286

PATIENT
  Age: 65 Year
  Sex: Male

DRUGS (4)
  1. ALBUTEROL [Concomitant]
     Indication: EMPHYSEMA
  2. CITALOPRAM [Interacting]
     Indication: DEPRESSION
     Dosage: 60 MG, UNK
  3. COMBIVENT [Concomitant]
     Indication: EMPHYSEMA
  4. CIPROFLOXACIN [Suspect]
     Indication: URINARY TRACT INFECTION
     Dosage: 500 MG, BID

REACTIONS (8)
  - EJECTION FRACTION DECREASED [None]
  - MENTAL STATUS CHANGES [None]
  - SEIZURE LIKE PHENOMENA [None]
  - TORSADE DE POINTES [None]
  - VENTRICULAR EXTRASYSTOLES [None]
  - DEPRESSED LEVEL OF CONSCIOUSNESS [None]
  - EXTRASYSTOLES [None]
  - INTERSTITIAL LUNG DISEASE [None]
